FAERS Safety Report 4263360-0 (Version None)
Quarter: 2004Q1

REPORT INFORMATION
  Report Type: 
  Country: None (occurrence: None)
  Receive Date: 20040105
  Receipt Date: 20031229
  Transmission Date: 20041129
  Serious: Yes (Disabling)
  Sender: FDA-Public Use
  Company Number: WAES 0312USA02667

PATIENT
  Age: 75 Year
  Sex: Female

DRUGS (6)
  1. FOSAMAX [Suspect]
     Route: 048
  2. FOSAMAX [Suspect]
     Route: 048
  3. AVAPRO [Concomitant]
  4. NIFEDIPINE [Concomitant]
  5. VIOXX [Concomitant]
     Route: 048
  6. TIMOPTIC [Concomitant]
     Route: 047

REACTIONS (2)
  - SPINAL FRACTURE [None]
  - WALKING AID USER [None]
